FAERS Safety Report 22122732 (Version 5)
Quarter: 2023Q2

REPORT INFORMATION
  Report Type: Report from Study
  Country: BR (occurrence: BR)
  Receive Date: 20230321
  Receipt Date: 20230623
  Transmission Date: 20230721
  Serious: Yes (Hospitalization, Other)
  Sender: FDA-Public Use
  Company Number: BR-BRISTOL-MYERS SQUIBB COMPANY-2023-037221

PATIENT
  Age: 69 Year
  Sex: Male
  Weight: 61.9 kg

DRUGS (3)
  1. DARATUMUMAB [Suspect]
     Active Substance: DARATUMUMAB
     Indication: Plasma cell myeloma refractory
     Route: 058
     Dates: start: 20230119, end: 20230302
  2. POMALIDOMIDE [Suspect]
     Active Substance: POMALIDOMIDE
     Indication: Plasma cell myeloma refractory
     Route: 048
     Dates: start: 20230119, end: 20230305
  3. DEXAMETHASONE [Suspect]
     Active Substance: DEXAMETHASONE
     Indication: Plasma cell myeloma refractory
     Route: 048
     Dates: start: 20230119, end: 20230302

REACTIONS (1)
  - Febrile neutropenia [Recovered/Resolved]

NARRATIVE: CASE EVENT DATE: 20230305
